FAERS Safety Report 7141112-1 (Version None)
Quarter: 2010Q4

REPORT INFORMATION
  Report Type: 
  Country: None (occurrence: None)
  Receive Date: 20101202
  Receipt Date: 20101202
  Transmission Date: 20110411
  Serious: Yes (Hospitalization)
  Sender: FDA-Public Use
  Company Number: None

PATIENT
  Age: 85 Year
  Sex: Male

DRUGS (1)
  1. WARFARIN SODIUM [Suspect]
     Indication: ATRIAL FIBRILLATION
     Dosage: 2 MG EVERYDAY PO
     Route: 048
     Dates: start: 20030409, end: 20101124

REACTIONS (4)
  - BRAIN MIDLINE SHIFT [None]
  - FALL [None]
  - JOINT INJURY [None]
  - SUBDURAL HAEMATOMA [None]
